FAERS Safety Report 6949735-7 (Version None)
Quarter: 2010Q3

REPORT INFORMATION
  Report Type: 
  Country: None (occurrence: None)
  Receive Date: 20100828
  Receipt Date: 20100108
  Transmission Date: 20110219
  Serious: No
  Sender: FDA-Public Use
  Company Number: US-ABBOTT-10P-163-0618935-00

PATIENT
  Sex: Male
  Weight: 81.72 kg

DRUGS (6)
  1. NIASPAN [Suspect]
     Indication: CORONARY ARTERIAL STENT INSERTION
     Dosage: INCREASED DUE TO ABNORMAL LAB VALUE
     Dates: start: 20060101, end: 20100101
  2. NIASPAN [Suspect]
     Indication: HIGH DENSITY LIPOPROTEIN DECREASED
     Dates: start: 20100101
  3. FISH OIL [Concomitant]
     Indication: MEDICAL DIET
  4. VITAMIN D [Concomitant]
     Indication: VITAMIN SUPPLEMENTATION
     Dosage: DAILY
  5. PLAVIX [Concomitant]
     Indication: CORONARY ARTERIAL STENT INSERTION
  6. CADUET [Concomitant]
     Indication: CORONARY ARTERIAL STENT INSERTION
     Dosage: 20MG/5MG DAILY

REACTIONS (5)
  - BLOOD TRIGLYCERIDES INCREASED [None]
  - HIGH DENSITY LIPOPROTEIN DECREASED [None]
  - INFLUENZA [None]
  - LOW DENSITY LIPOPROTEIN INCREASED [None]
  - PROSTATIC SPECIFIC ANTIGEN INCREASED [None]
